FAERS Safety Report 10175552 (Version 2)
Quarter: 2014Q2

REPORT INFORMATION
  Report Type: Report from Study
  Country: CA (occurrence: CA)
  Receive Date: 20140516
  Receipt Date: 20140516
  Transmission Date: 20141212
  Serious: Yes (Hospitalization, Other)
  Sender: FDA-Public Use
  Company Number: CA-ROCHE-1076475

PATIENT
  Age: 68 Year
  Sex: Female
  Weight: 70.82 kg

DRUGS (5)
  1. ACTEMRA [Suspect]
     Indication: RHEUMATOID ARTHRITIS
     Route: 042
     Dates: start: 20101005
  2. PAMIDRONATE [Concomitant]
  3. ELTROXIN [Concomitant]
  4. ARAVA [Concomitant]
  5. ATACAND [Concomitant]

REACTIONS (3)
  - Pneumonia [Recovered/Resolved]
  - Eye ulcer [Recovering/Resolving]
  - Dry eye [Unknown]
